FAERS Safety Report 14599948 (Version 1)
Quarter: 2018Q1

REPORT INFORMATION
  Report Type: Report from Study
  Country: JP (occurrence: JP)
  Receive Date: 20180305
  Receipt Date: 20180305
  Transmission Date: 20180509
  Serious: Yes (Hospitalization, Other)
  Sender: FDA-Public Use
  Company Number: JP-ASTELLAS-2017JP013134

PATIENT
  Age: 55 Year
  Sex: Female
  Weight: 51 kg

DRUGS (14)
  1. TACROLIMUS. [Suspect]
     Active Substance: TACROLIMUS
     Indication: CORD BLOOD TRANSPLANT THERAPY
     Dosage: 0.05 MG/HOUR, CONTINUOUS
     Route: 065
     Dates: start: 20090122, end: 20090126
  2. GLYCYRON                           /00466401/ [Concomitant]
     Indication: PRODUCT USED FOR UNKNOWN INDICATION
     Dosage: UNK UNK, THRICE DAILY
     Route: 048
     Dates: end: 20090107
  3. ITRIZOLE [Concomitant]
     Active Substance: ITRACONAZOLE
     Indication: PRODUCT USED FOR UNKNOWN INDICATION
     Route: 048
     Dates: start: 20081204
  4. ETOPOSIDE. [Concomitant]
     Active Substance: ETOPOSIDE
     Indication: ACUTE MYELOID LEUKAEMIA
     Dosage: UNK UNK, UNKNOWN FREQ.
     Route: 065
  5. PARIET [Concomitant]
     Active Substance: RABEPRAZOLE SODIUM
     Indication: PRODUCT USED FOR UNKNOWN INDICATION
     Route: 048
  6. ULCERLMIN [Concomitant]
     Active Substance: SUCRALFATE
     Indication: PRODUCT USED FOR UNKNOWN INDICATION
     Route: 048
     Dates: start: 20081204, end: 20090114
  7. CYTARABINE. [Concomitant]
     Active Substance: CYTARABINE
     Dosage: UNK UNK, UNKNOWN FREQ.
     Route: 065
     Dates: start: 200805, end: 200805
  8. BIOFERMIN R [Concomitant]
     Active Substance: BACILLUS SUBTILIS\LACTOBACILLUS ACIDOPHILUS\STREPTOCOCCUS FAECAIS
     Indication: PRODUCT USED FOR UNKNOWN INDICATION
     Route: 048
     Dates: start: 20081204
  9. MAXIPIME [Concomitant]
     Active Substance: CEFEPIME HYDROCHLORIDE
     Indication: PRODUCT USED FOR UNKNOWN INDICATION
     Route: 042
     Dates: start: 20081217
  10. TACROLIMUS. [Suspect]
     Active Substance: TACROLIMUS
     Dosage: 0.04 MG/HOUR, CONTINUOUS
     Route: 065
     Dates: start: 20090127
  11. URSO [Concomitant]
     Active Substance: URSODIOL
     Indication: PRODUCT USED FOR UNKNOWN INDICATION
     Route: 048
  12. CYTARABINE. [Concomitant]
     Active Substance: CYTARABINE
     Dosage: HIGH DOSE, 3 COURSES
     Route: 065
  13. CYTARABINE. [Concomitant]
     Active Substance: CYTARABINE
     Indication: ACUTE MYELOID LEUKAEMIA
     Dosage: UNK UNK, UNKNOWN FREQ.
     Route: 065
     Dates: start: 200706, end: 200706
  14. CYTARABINE. [Concomitant]
     Active Substance: CYTARABINE
     Dosage: UNK UNK, UNKNOWN FREQ.
     Route: 065

REACTIONS (3)
  - Cytomegalovirus enterocolitis [Unknown]
  - Toxic encephalopathy [Recovered/Resolved]
  - Cytomegalovirus gastritis [Recovering/Resolving]

NARRATIVE: CASE EVENT DATE: 20090126
